FAERS Safety Report 6477490-6 (Version None)
Quarter: 2009Q4

REPORT INFORMATION
  Report Type: 
  Country: None (occurrence: None)
  Receive Date: 20091202
  Receipt Date: 20091125
  Transmission Date: 20100525
  Serious: Yes (Other)
  Sender: FDA-Public Use
  Company Number: 2009SP038342

PATIENT
  Age: 58 Year
  Sex: Male
  Weight: 83.2 kg

DRUGS (8)
  1. DEXAMETHASONE [Suspect]
     Indication: LYMPHOMA
     Dosage: PO
     Route: 048
     Dates: start: 20060401
  2. AMITRIPTYLINE HYDROCHLORIDE [Suspect]
     Indication: DEPRESSION
     Dosage: PO
     Route: 048
  3. RITUXAN [Suspect]
     Indication: LYMPHOMA
     Dosage: IV
     Route: 042
     Dates: start: 20060619, end: 20090619
  4. OMEPRAZOLE [Suspect]
     Indication: DYSPEPSIA
     Dosage: PO
     Route: 048
     Dates: start: 20060619, end: 20060619
  5. VFEND [Suspect]
     Indication: ASPERGILLOSIS
     Dosage: 200 MG;QD; 300 MG;QD; 300 MG;BID;
     Dates: start: 20060707, end: 20060709
  6. VFEND [Suspect]
     Indication: ASPERGILLOSIS
     Dosage: 200 MG;QD; 300 MG;QD; 300 MG;BID;
     Dates: start: 20060401
  7. VFEND [Suspect]
     Indication: ASPERGILLOSIS
     Dosage: 200 MG;QD; 300 MG;QD; 300 MG;BID;
     Dates: start: 20060710
  8. ZOPICLONE (ZOPICLONE) [Suspect]
     Indication: INSOMNIA
     Dosage: PO
     Route: 048
     Dates: start: 20060401

REACTIONS (6)
  - AGITATION [None]
  - AMNESIA [None]
  - BEDRIDDEN [None]
  - CHILLS [None]
  - CONFUSIONAL STATE [None]
  - FEELING ABNORMAL [None]
